FAERS Safety Report 19076859 (Version 2)
Quarter: 2021Q3

REPORT INFORMATION
  Report Type: Report from Study
  Country: None (occurrence: FR)
  Receive Date: 20210331
  Receipt Date: 20210929
  Transmission Date: 20211014
  Serious: Yes (Other)
  Sender: FDA-Public Use
  Company Number: FR-ABBVIE-19K-056-2873219-00

PATIENT
  Sex: Male
  Weight: 78 kg

DRUGS (25)
  1. VENETOCLAX. [Suspect]
     Active Substance: VENETOCLAX
     Route: 048
     Dates: start: 20190415, end: 20190421
  2. VENETOCLAX. [Suspect]
     Active Substance: VENETOCLAX
     Route: 048
     Dates: start: 20190521
  3. LEDERFOLINE [Concomitant]
     Active Substance: LEUCOVORIN CALCIUM
     Indication: HAEMATOTOXICITY
  4. VENETOCLAX. [Suspect]
     Active Substance: VENETOCLAX
     Route: 048
     Dates: start: 20190408, end: 20190408
  5. VENETOCLAX. [Suspect]
     Active Substance: VENETOCLAX
     Route: 048
     Dates: start: 20190422, end: 20190428
  6. HIZENTRA [Concomitant]
     Active Substance: HUMAN IMMUNOGLOBULIN G
     Dates: start: 20200930
  7. ALLOPURINOL. [Concomitant]
     Active Substance: ALLOPURINOL
     Indication: PROPHYLAXIS
     Dates: start: 20190318, end: 20190509
  8. VENETOCLAX. [Suspect]
     Active Substance: VENETOCLAX
     Route: 048
     Dates: start: 20190429, end: 20190508
  9. LEDERFOLINE [Concomitant]
     Active Substance: LEUCOVORIN CALCIUM
     Indication: PROPHYLAXIS
     Dates: start: 20200826
  10. VENETOCLAX. [Suspect]
     Active Substance: VENETOCLAX
     Route: 048
     Dates: start: 20190325, end: 20190331
  11. VENETOCLAX. [Suspect]
     Active Substance: VENETOCLAX
     Route: 048
     Dates: start: 20190401, end: 20190407
  12. COVID?19 VACCINE NOS. [Suspect]
     Active Substance: COVID-19 VACCINE NOS
     Indication: COVID-19 IMMUNISATION
     Route: 030
     Dates: start: 202105, end: 202105
  13. PENTACARINAT [Concomitant]
     Active Substance: PENTAMIDINE ISETHIONATE
     Indication: INFECTION PROPHYLAXIS
     Dates: start: 20180503, end: 20200826
  14. COVID?19 VACCINE NOS. [Suspect]
     Active Substance: COVID-19 VACCINE NOS
     Route: 030
     Dates: start: 20210607, end: 20210607
  15. BACTRIM [Concomitant]
     Active Substance: SULFAMETHOXAZOLE\TRIMETHOPRIM
     Indication: INFECTION PROPHYLAXIS
     Dates: start: 20200826
  16. HIZENTRA [Concomitant]
     Active Substance: HUMAN IMMUNOGLOBULIN G
     Indication: PRODUCT USED FOR UNKNOWN INDICATION
     Dates: start: 20181113, end: 20200826
  17. VENETOCLAX. [Suspect]
     Active Substance: VENETOCLAX
     Indication: CHRONIC LYMPHOCYTIC LEUKAEMIA
     Route: 048
     Dates: start: 20190318, end: 20190324
  18. HIZENTRA [Concomitant]
     Active Substance: HUMAN IMMUNOGLOBULIN G
     Indication: INFECTION PROPHYLAXIS
     Dates: start: 20181113, end: 20200826
  19. VALACICLOVIR [Concomitant]
     Active Substance: VALACYCLOVIR HYDROCHLORIDE
     Indication: PRODUCT USED FOR UNKNOWN INDICATION
     Dates: start: 20190318
  20. BACTRIM [Concomitant]
     Active Substance: SULFAMETHOXAZOLE\TRIMETHOPRIM
     Indication: INFECTION
  21. ZELITREX [Concomitant]
     Active Substance: VALACYCLOVIR HYDROCHLORIDE
     Indication: INFECTION PROPHYLAXIS
     Dates: start: 20161018
  22. VENTOLINE [Concomitant]
     Active Substance: ALBUTEROL
     Indication: INFECTION PROPHYLAXIS
     Dates: start: 20180503, end: 20200826
  23. PANTOPRAZOLE [Concomitant]
     Active Substance: PANTOPRAZOLE
     Indication: GASTROINTESTINAL DISORDER PROPHYLAXIS
     Dates: start: 20190318, end: 20190415
  24. HIZENTRA [Concomitant]
     Active Substance: HUMAN IMMUNOGLOBULIN G
     Dates: start: 20200930
  25. LOVENOX [Concomitant]
     Active Substance: ENOXAPARIN SODIUM
     Indication: ANTICOAGULANT THERAPY
     Dates: start: 20210202, end: 20210212

REACTIONS (20)
  - Basal cell carcinoma [Recovered/Resolved]
  - Hypocalcaemia [Recovered/Resolved]
  - Lymphadenopathy [Not Recovered/Not Resolved]
  - Dyspnoea [Recovered/Resolved]
  - Hyperhidrosis [Recovered/Resolved]
  - Tachycardia [Recovered/Resolved]
  - COVID-19 [Recovered/Resolved]
  - Viral upper respiratory tract infection [Recovered/Resolved]
  - Anaemia [Recovered/Resolved]
  - Viral pharyngitis [Recovered/Resolved]
  - Hyperuricaemia [Recovered/Resolved]
  - Hyperphosphataemia [Recovered/Resolved]
  - Muscle spasms [Recovered/Resolved]
  - Diarrhoea [Not Recovered/Not Resolved]
  - Off label use [Recovered/Resolved]
  - Hyperkalaemia [Recovered/Resolved]
  - Asthenia [Recovered/Resolved]
  - Cough [Recovered/Resolved]
  - Neutropenia [Recovered/Resolved]
  - Haemangioma [Not Recovered/Not Resolved]

NARRATIVE: CASE EVENT DATE: 20190318
